FAERS Safety Report 4717174-5 (Version None)
Quarter: 2005Q3

REPORT INFORMATION
  Report Type: 
  Country: None (occurrence: None)
  Receive Date: 20050715
  Receipt Date: 20050704
  Transmission Date: 20060218
  Serious: Yes (Hospitalization)
  Sender: FDA-Public Use
  Company Number: BRO-008779

PATIENT
  Age: 80 Year
  Sex: Male

DRUGS (4)
  1. IOPAMIDOL-370 [Suspect]
     Indication: ARTERIOGRAM CORONARY
     Dosage: 150 ML, IC
     Route: 016
     Dates: start: 20050603, end: 20050603
  2. IOPAMIDOL-370 [Suspect]
     Indication: CORONARY ARTERY STENOSIS
     Dosage: 150 ML, IC
     Route: 016
     Dates: start: 20050603, end: 20050603
  3. IOPAMIDOL-370 [Suspect]
     Indication: STENT PLACEMENT
     Dosage: 150 ML, IC
     Route: 016
     Dates: start: 20050603, end: 20050603
  4. DIAZEPAM [Concomitant]

REACTIONS (2)
  - AMNESIA [None]
  - DELIRIUM [None]
